FAERS Safety Report 8224821-2 (Version None)
Quarter: 2012Q1

REPORT INFORMATION
  Report Type: 
  Country: None (occurrence: None)
  Receive Date: 20120314
  Receipt Date: 20120314
  Transmission Date: 20120608
  Serious: Yes (Hospitalization)
  Sender: FDA-Public Use
  Company Number: None

PATIENT
  Sex: Male
  Weight: 84.8 kg

DRUGS (18)
  1. SPRIVA [Concomitant]
  2. TRELSTAR [Concomitant]
  3. WARFARIN SODIUM [Concomitant]
  4. ALBUTEROL [Concomitant]
  5. HYDROCODONE [Concomitant]
  6. TRAVATAN [Concomitant]
  7. PULMICORT [Concomitant]
  8. NAMENDA [Concomitant]
  9. CA [Concomitant]
  10. SPIRONOLACTONE [Concomitant]
  11. AZOPT [Concomitant]
  12. HOMOLOG [Concomitant]
  13. SEREVANT [Concomitant]
  14. METOPROLOL TARTRATE [Concomitant]
  15. TORISEL [Suspect]
     Indication: PROSTATE CANCER
     Dosage: 25 MG QWEAK IV
     Route: 042
     Dates: start: 20111201, end: 20111229
  16. PREDNISONE TAB [Concomitant]
  17. ALPHAGAN P [Concomitant]
  18. M.V.I. [Concomitant]

REACTIONS (1)
  - PNEUMONIA [None]
